FAERS Safety Report 5962967-X (Version None)
Quarter: 2008Q4

REPORT INFORMATION
  Report Type: 
  Country: None (occurrence: None)
  Receive Date: 20081119
  Receipt Date: 20081111
  Transmission Date: 20090506
  Serious: Yes (Other)
  Sender: FDA-Public Use
  Company Number: CHNY2008DE04084

PATIENT
  Sex: Male

DRUGS (1)
  1. LAMISIL [Suspect]
     Dosage: TOPICAL
     Route: 061

REACTIONS (3)
  - BLISTER [None]
  - OEDEMA PERIPHERAL [None]
  - OROPHARYNGEAL BLISTERING [None]
